FAERS Safety Report 9439964 (Version 1)
Quarter: 2013Q3

REPORT INFORMATION
  Report Type: Spontaneous
  Country: US (occurrence: US)
  Receive Date: 20130805
  Receipt Date: 20130805
  Transmission Date: 20140515
  Serious: Yes (Other)
  Sender: FDA-Public Use
  Company Number: US-CELGENEUS-163-20785-13074048

PATIENT
  Sex: Male
  Weight: 97.16 kg

DRUGS (4)
  1. THALOMID [Suspect]
     Indication: ANGIODYSPLASIA
     Dosage: 100 MILLIGRAM
     Route: 048
     Dates: start: 20120503
  2. THALOMID [Suspect]
     Dosage: 50 MILLIGRAM
     Route: 048
     Dates: start: 201212
  3. THALOMID [Suspect]
     Dosage: 100MG ALTERNATING 50MG
     Route: 048
     Dates: start: 201212
  4. CORONARY MEDS [Concomitant]
     Indication: PRODUCT USED FOR UNKNOWN INDICATION
     Route: 065

REACTIONS (3)
  - Haemorrhage [Not Recovered/Not Resolved]
  - Leukopenia [Not Recovered/Not Resolved]
  - Drug ineffective [Unknown]
